FAERS Safety Report 8883435 (Version 2)
Quarter: 2012Q4

REPORT INFORMATION
  Report Type: Report from Study
  Country: US (occurrence: US)
  Receive Date: 20121102
  Receipt Date: 20121120
  Transmission Date: 20130627
  Serious: Yes (Other)
  Sender: FDA-Public Use
  Company Number: US-ABBOTT-12P-163-0991167-00

PATIENT
  Age: 43 Year
  Sex: Male

DRUGS (1)
  1. HUMIRA [Suspect]
     Indication: CROHN^S DISEASE
     Dosage: Loading dose only
     Dates: start: 20120919

REACTIONS (5)
  - Oedema mouth [Unknown]
  - Face oedema [Unknown]
  - Tooth infection [Recovering/Resolving]
  - Localised infection [Recovering/Resolving]
  - Oral pain [Unknown]
